FAERS Safety Report 4633797-6 (Version None)
Quarter: 2005Q2

REPORT INFORMATION
  Report Type: 
  Country: None (occurrence: None)
  Receive Date: 20050408
  Receipt Date: 20050329
  Transmission Date: 20051028
  Serious: Yes (Death)
  Sender: FDA-Public Use
  Company Number: 05P-163-0295446-00

PATIENT
  Age: 67 Year
  Sex: Female

DRUGS (1)
  1. SYNTHROID [Suspect]

REACTIONS (1)
  - DEATH [None]
